FAERS Safety Report 5350044-0 (Version None)
Quarter: 2007Q2

REPORT INFORMATION
  Report Type: 
  Country: None (occurrence: None)
  Receive Date: 20070510
  Receipt Date: 20060929
  Transmission Date: 20071010
  Serious: Yes (Other)
  Sender: FDA-Public Use
  Company Number: 2006S1000025

PATIENT
  Age: 33 Year
  Sex: Female
  Weight: 75 kg

DRUGS (5)
  1. CUBICIN [Suspect]
     Indication: ARTHRITIS BACTERIAL
     Dosage: 4 MG/KG; Q24H; IV
     Route: 042
  2. CUBICIN [Suspect]
     Indication: WOUND INFECTION
     Dosage: 4 MG/KG; Q24H; IV
     Route: 042
  3. AUGMENTIN '125' [Concomitant]
  4. BACTRIM [Concomitant]
  5. PARACETAMOL/HYDROCODONE [Concomitant]

REACTIONS (4)
  - BLOOD CREATINE PHOSPHOKINASE INCREASED [None]
  - MUSCULAR WEAKNESS [None]
  - MYALGIA [None]
  - RHABDOMYOLYSIS [None]
